FAERS Safety Report 8583716 (Version 3)
Quarter: 2013Q1

REPORT INFORMATION
  Report Type: Spontaneous
  Country: JP (occurrence: JP)
  Receive Date: 20120529
  Receipt Date: 20130325
  Transmission Date: 20140127
  Serious: Yes (Hospitalization)
  Sender: FDA-Public Use
  Company Number: JP-GLAXOSMITHKLINE-B0798807A

PATIENT
  Age: 70 None
  Sex: Female

DRUGS (21)
  1. LAMICTAL [Suspect]
     Indication: EPILEPSY
     Dosage: 25MG TWICE PER DAY
     Route: 048
     Dates: start: 20120127, end: 20120206
  2. LAMICTAL [Suspect]
     Indication: EPILEPSY
     Dosage: 50MG TWICE PER DAY
     Route: 048
     Dates: start: 20120207, end: 20130304
  3. LAMICTAL [Suspect]
     Indication: EPILEPSY
     Route: 048
     Dates: start: 20120305, end: 20120312
  4. LAMICTAL [Suspect]
     Indication: EPILEPSY
     Dosage: 100MG TWICE PER DAY
     Route: 048
     Dates: start: 20120313, end: 20120425
  5. TEGRETOL [Suspect]
     Indication: EPILEPSY
     Route: 048
     Dates: start: 20111222
  6. TEGRETOL [Suspect]
     Indication: EPILEPSY
     Dosage: 400MG TWICE PER DAY
     Route: 048
     Dates: end: 20111225
  7. TEGRETOL [Suspect]
     Indication: EPILEPSY
     Dosage: 200MG TWICE PER DAY
     Route: 048
     Dates: start: 20111226, end: 20111230
  8. TEGRETOL [Suspect]
     Indication: EPILEPSY
     Dosage: 300MG TWICE PER DAY
     Route: 048
     Dates: start: 20111231, end: 20120127
  9. TEGRETOL [Suspect]
     Indication: EPILEPSY
     Dosage: 100MG TWICE PER DAY
     Route: 048
     Dates: start: 20120128, end: 20120301
  10. TEGRETOL [Suspect]
     Indication: EPILEPSY
     Route: 048
     Dates: start: 20120312, end: 20120315
  11. ALEVIATIN [Suspect]
     Indication: EPILEPSY
     Route: 048
     Dates: start: 20120113, end: 20120127
  12. MYSER [Suspect]
     Indication: RASH
     Route: 061
  13. CHINESE MEDICINE [Concomitant]
     Indication: GASTROINTESTINAL HYPOMOTILITY
     Dosage: 2.5G THREE TIMES PER DAY
     Route: 048
  14. GASTER D [Concomitant]
     Indication: GASTRITIS PROPHYLAXIS
     Dosage: 10MG TWO TIMES PER WEEK
     Route: 048
  15. TOPSYM [Concomitant]
     Route: 061
  16. E KEPPRA [Concomitant]
     Indication: EPILEPSY
     Dosage: 500MG TWICE PER DAY
     Route: 048
     Dates: start: 20111227, end: 20111230
  17. E KEPPRA [Concomitant]
     Indication: EPILEPSY
     Dosage: 750MG TWICE PER DAY
     Route: 048
     Dates: start: 20111231, end: 20120112
  18. E KEPPRA [Concomitant]
     Indication: EPILEPSY
     Dosage: 1G TWICE PER DAY
     Route: 048
     Dates: start: 20120113, end: 20120119
  19. E KEPPRA [Concomitant]
     Indication: EPILEPSY
     Dosage: 1.25G TWICE PER DAY
     Route: 048
     Dates: start: 20120120, end: 20120123
  20. E KEPPRA [Concomitant]
     Indication: EPILEPSY
     Dosage: 1.5G TWICE PER DAY
     Route: 048
     Dates: start: 20120124
  21. E KEPPRA [Concomitant]
     Indication: EPILEPSY
     Dosage: 250MG TWICE PER DAY
     Route: 048
     Dates: end: 20120311

REACTIONS (14)
  - Erythema multiforme [Unknown]
  - Epidermal necrosis [Unknown]
  - Cytomegalovirus infection [Unknown]
  - Convulsion [Unknown]
  - Drug eruption [Recovered/Resolved]
  - Rash [Recovered/Resolved]
  - Oral mucosal eruption [Unknown]
  - Conjunctivitis [Recovered/Resolved]
  - Blepharitis [Recovered/Resolved]
  - Erythema [Unknown]
  - Ocular hyperaemia [Unknown]
  - Conjunctival disorder [Unknown]
  - Oral mucosa erosion [Unknown]
  - Scab [Unknown]
